FAERS Safety Report 7145903-2 (Version None)
Quarter: 2010Q4

REPORT INFORMATION
  Report Type: 
  Country: None (occurrence: None)
  Receive Date: 20101208
  Receipt Date: 20101126
  Transmission Date: 20110411
  Serious: Yes (Other)
  Sender: FDA-Public Use
  Company Number: IT-ELI_LILLY_AND_COMPANY-IT201011007110

PATIENT
  Sex: Male

DRUGS (8)
  1. ALIMTA [Suspect]
     Indication: LUNG ADENOCARCINOMA
     Dosage: 750 MG, PER CYCLE
     Route: 042
     Dates: start: 20101013, end: 20101027
  2. MINITRAN                           /00003201/ [Concomitant]
     Dosage: UNK, UNKNOWN
     Route: 065
  3. COVERSYL [Concomitant]
     Dosage: UNK, UNKNOWN
     Route: 065
  4. PROCAPTAN [Concomitant]
     Dosage: UNK, UNKNOWN
     Route: 065
  5. LOBIVON [Concomitant]
     Dosage: UNK, UNKNOWN
     Route: 065
  6. TOTALIP [Concomitant]
     Dosage: UNK, UNKNOWN
     Route: 065
  7. NORVASC [Concomitant]
     Dosage: UNK, UNKNOWN
     Route: 065
  8. TACHIDOL [Concomitant]
     Dosage: UNK, UNKNOWN
     Route: 065

REACTIONS (1)
  - HEPATOTOXICITY [None]
